FAERS Safety Report 22039358 (Version 2)
Quarter: 2023Q1

REPORT INFORMATION
  Report Type: Spontaneous
  Country: JP (occurrence: JP)
  Receive Date: 20230227
  Receipt Date: 20230303
  Transmission Date: 20230417
  Serious: Yes (Hospitalization, Other)
  Sender: FDA-Public Use
  Company Number: JP-GLAXOSMITHKLINE-JP2023JPN029374

PATIENT

DRUGS (1)
  1. LAMICTAL [Suspect]
     Active Substance: LAMOTRIGINE
     Indication: Focal dyscognitive seizures
     Dosage: 25 MG, QD (AFTER DINNER)
     Route: 048
     Dates: start: 20221114, end: 20221201

REACTIONS (9)
  - Stevens-Johnson syndrome [Recovering/Resolving]
  - Pyrexia [Unknown]
  - Erythema [Unknown]
  - Oedema [Unknown]
  - Rash [Unknown]
  - Conjunctival hyperaemia [Unknown]
  - Oral mucosal blistering [Unknown]
  - Lip swelling [Unknown]
  - Blister [Unknown]

NARRATIVE: CASE EVENT DATE: 20221128
